FAERS Safety Report 24025930 (Version 1)
Quarter: 2024Q2

REPORT INFORMATION
  Report Type: Spontaneous
  Country: US (occurrence: US)
  Receive Date: 20240628
  Receipt Date: 20240628
  Transmission Date: 20240716
  Serious: No
  Sender: FDA-Public Use
  Company Number: US-AUROBINDO-AUR-APL-2023-080235

PATIENT
  Age: 83 Year
  Sex: Female
  Weight: 61.235 kg

DRUGS (2)
  1. AZELASTINE HYDROCHLORIDE [Suspect]
     Active Substance: AZELASTINE HYDROCHLORIDE
     Indication: Rhinitis
     Dosage: 1 DOSAGE FORM, TWO TIMES A DAY (ONE SPRAY IN EACH NOSTRIL)
     Route: 045
     Dates: start: 20231212
  2. FLONASE [Concomitant]
     Active Substance: FLUTICASONE PROPIONATE
     Indication: Product used for unknown indication
     Dosage: UNK
     Route: 065

REACTIONS (4)
  - Rhinorrhoea [Recovered/Resolved]
  - Neurological symptom [Recovered/Resolved]
  - Hypersensitivity [Recovered/Resolved]
  - Expulsion of medication [Unknown]
